FAERS Safety Report 4927808-8 (Version None)
Quarter: 2006Q1

REPORT INFORMATION
  Report Type: 
  Country: None (occurrence: None)
  Receive Date: 20060222
  Receipt Date: 20060206
  Transmission Date: 20060701
  Serious: Yes (Death)
  Sender: FDA-Public Use
  Company Number: PCA0511244

PATIENT
  Age: 12 Month
  Sex: Male

DRUGS (1)
  1. CHILDREN'S IBUPROFEN SUSP, 100 MG/5ML, PERRIGO [Suspect]
     Indication: PYREXIA
     Dates: start: 20031206, end: 20040202

REACTIONS (5)
  - ASPHYXIA [None]
  - ASTHMA [None]
  - LOSS OF CONSCIOUSNESS [None]
  - PHARMACEUTICAL PRODUCT COMPLAINT [None]
  - RESPIRATORY ARREST [None]
